FAERS Safety Report 17086640 (Version 1)
Quarter: 2019Q4

REPORT INFORMATION
  Report Type: Spontaneous
  Country: US (occurrence: US)
  Receive Date: 20191128
  Receipt Date: 20191128
  Transmission Date: 20200122
  Serious: No
  Sender: FDA-Public Use
  Company Number: US-HEYL CHEMISCH-PHARMAZEUTISCHE FABRIK-2077286

PATIENT
  Age: 65 Year
  Sex: Female

DRUGS (1)
  1. RADIOGARDASE [Suspect]
     Active Substance: FERRIC FERROCYANIDE
     Indication: METAL POISONING
     Route: 048
     Dates: start: 20181113

REACTIONS (2)
  - Vertigo [Recovered/Resolved]
  - Tinnitus [Recovered/Resolved]

NARRATIVE: CASE EVENT DATE: 20181213
